FAERS Safety Report 6011009-9 (Version None)
Quarter: 2008Q4

REPORT INFORMATION
  Report Type: 
  Country: None (occurrence: None)
  Receive Date: 20081218
  Receipt Date: 20081216
  Transmission Date: 20090506
  Serious: Yes (Other)
  Sender: FDA-Public Use
  Company Number: B0551053A

PATIENT
  Age: 25 Year
  Sex: Female
  Weight: 55 kg

DRUGS (1)
  1. FLIXONASE [Suspect]
     Dosage: 100MG PER DAY
     Route: 045
     Dates: start: 20070901

REACTIONS (5)
  - MUCOSAL HAEMORRHAGE [None]
  - NASAL DISCOMFORT [None]
  - NASAL DRYNESS [None]
  - SCAB [None]
  - SKIN LESION [None]
